FAERS Safety Report 8275132-0 (Version None)
Quarter: 2012Q2

REPORT INFORMATION
  Report Type: 
  Country: None (occurrence: None)
  Receive Date: 20120411
  Receipt Date: 20120329
  Transmission Date: 20120825
  Serious: No
  Sender: FDA-Public Use
  Company Number: US-B.I. PHARMACEUTICALS,INC./RIDGEFIELD-2011-BP-01716BP

PATIENT
  Sex: Male
  Weight: 90.72 kg

DRUGS (3)
  1. MIRAPEX [Suspect]
     Indication: MYOCLONUS
  2. MIRAPEX [Suspect]
     Indication: RESTLESS LEGS SYNDROME
     Route: 048
     Dates: start: 20080227
  3. MIRAPEX [Suspect]
     Indication: BRUXISM

REACTIONS (4)
  - PATHOLOGICAL GAMBLING [None]
  - OBSESSIVE-COMPULSIVE DISORDER [None]
  - EMOTIONAL DISTRESS [None]
  - PAIN [None]
